FAERS Safety Report 10681897 (Version 1)
Quarter: 2014Q4

REPORT INFORMATION
  Report Type: Spontaneous
  Country: US (occurrence: None)
  Receive Date: 20141229
  Receipt Date: 20141229
  Transmission Date: 20150529
  Serious: Yes (Disabling)
  Sender: FDA-Public Use
  Company Number: None

PATIENT
  Age: 57 Year
  Sex: Male
  Weight: 117.94 kg

DRUGS (1)
  1. CONTRAVE [Suspect]
     Active Substance: BUPROPION HYDROCHLORIDE\NALTREXONE HYDROCHLORIDE
     Indication: WEIGHT CONTROL
     Dosage: 1/2/4 PILLS PER DAY
     Dates: start: 20141205, end: 20141217

REACTIONS (6)
  - Dysphonia [None]
  - Tremor [None]
  - Head titubation [None]
  - Speech disorder [None]
  - Aggression [None]
  - Essential tremor [None]

NARRATIVE: CASE EVENT DATE: 20141216
